FAERS Safety Report 25208049 (Version 1)
Quarter: 2025Q2

REPORT INFORMATION
  Report Type: Report from Study
  Country: ZA (occurrence: ZA)
  Receive Date: 20250417
  Receipt Date: 20250417
  Transmission Date: 20250717
  Serious: Yes (Other)
  Sender: ROCHE
  Company Number: ZA-ROCHE-10000257059

PATIENT
  Sex: Male

DRUGS (1)
  1. OCREVUS [Suspect]
     Active Substance: OCRELIZUMAB
     Indication: Primary progressive multiple sclerosis
     Dosage: THEREAFTER 600MG EVERY 6 MONTHS.??SUBSEQUENT DOSE WAS TAKEN ON 22/APR/2024 AND SECOND DOSE WAS ON /N
     Route: 042
     Dates: start: 20240403

REACTIONS (2)
  - Primary progressive multiple sclerosis [Unknown]
  - Therapeutic product effect decreased [Unknown]
